FAERS Safety Report 5680495-6 (Version None)
Quarter: 2008Q1

REPORT INFORMATION
  Report Type: 
  Country: None (occurrence: None)
  Receive Date: 20080326
  Receipt Date: 20080307
  Transmission Date: 20080703
  Serious: Yes (Other)
  Sender: FDA-Public Use
  Company Number: JP-BRACCO-000254

PATIENT
  Age: 49 Year
  Sex: Male

DRUGS (6)
  1. IOPAMIRON [Suspect]
     Indication: COMPUTERISED TOMOGRAM
     Route: 042
     Dates: start: 20080215, end: 20080215
  2. IOPAMIRON [Suspect]
     Indication: ADRENAL NEOPLASM
     Route: 042
     Dates: start: 20080215, end: 20080215
  3. NEO-MINOPHAGEN C [Concomitant]
     Route: 042
     Dates: start: 20080215
  4. SAXIZON [Concomitant]
     Route: 042
     Dates: start: 20080215
  5. SOLULACT [Concomitant]
     Route: 042
     Dates: start: 20080215
  6. POLARAMINE [Concomitant]
     Route: 042
     Dates: start: 20080215

REACTIONS (5)
  - HYPERAEMIA [None]
  - HYPOXIA [None]
  - NASAL CONGESTION [None]
  - PHARYNGOLARYNGEAL DISCOMFORT [None]
  - RHINORRHOEA [None]
